FAERS Safety Report 15708838 (Version 1)
Quarter: 2018Q4

REPORT INFORMATION
  Report Type: Spontaneous
  Country: US (occurrence: US)
  Receive Date: 20181211
  Receipt Date: 20181211
  Transmission Date: 20190205
  Serious: Yes (Disabling, Other)
  Sender: FDA-Public Use
  Company Number: None

PATIENT
  Age: 45 Year
  Sex: Female
  Weight: 51.75 kg

DRUGS (2)
  1. XGEVA [Suspect]
     Active Substance: DENOSUMAB
     Indication: BREAST CANCER
     Dosage: ?          OTHER STRENGTH:I DON^T KNOW;QUANTITY:2 INJECTION(S);OTHER FREQUENCY:1 PER MONTH;OTHER ROUTE:INJECTION SKIN?
     Dates: start: 20180202, end: 20180504
  2. XGEVA [Suspect]
     Active Substance: DENOSUMAB
     Indication: METASTASES TO BONE
     Dosage: ?          OTHER STRENGTH:I DON^T KNOW;QUANTITY:2 INJECTION(S);OTHER FREQUENCY:1 PER MONTH;OTHER ROUTE:INJECTION SKIN?
     Dates: start: 20180202, end: 20180504

REACTIONS (2)
  - Feeding disorder [None]
  - Osteonecrosis of jaw [None]

NARRATIVE: CASE EVENT DATE: 20180418
